FAERS Safety Report 8508346-2 (Version None)
Quarter: 2012Q3

REPORT INFORMATION
  Report Type: 
  Country: None (occurrence: None)
  Receive Date: 20120713
  Receipt Date: 20120706
  Transmission Date: 20120928
  Serious: Yes (Hospitalization)
  Sender: FDA-Public Use
  Company Number: PHHY2009FR25952

PATIENT
  Sex: Male
  Weight: 99 kg

DRUGS (6)
  1. TENORMIN [Concomitant]
     Indication: HYPERTENSION
     Dosage: 1 DF, QD
     Route: 048
  2. PREVISCAN [Concomitant]
     Indication: ARRHYTHMIA
     Dosage: ? TABLET DAILY
  3. TASIGNA [Suspect]
     Indication: CHRONIC MYELOID LEUKAEMIA
     Dosage: 400 MG, BID
     Route: 048
     Dates: start: 20080603, end: 20090901
  4. LEXOMIL [Concomitant]
     Indication: DEPRESSION
  5. MORPHINE SULFATE [Concomitant]
     Indication: SPINAL COLUMN STENOSIS
     Dosage: 30 MG IN THE MORNING AND 10 MG IN THE EVENING
  6. EFFEXOR [Concomitant]
     Indication: DEPRESSION
     Dosage: 37.5 MG, QD
     Route: 048

REACTIONS (3)
  - PERIPHERAL ARTERIAL OCCLUSIVE DISEASE [None]
  - PAIN IN EXTREMITY [None]
  - ARTERITIS [None]
